FAERS Safety Report 6573317-2 (Version None)
Quarter: 2010Q1

REPORT INFORMATION
  Report Type: 
  Country: None (occurrence: None)
  Receive Date: 20100208
  Receipt Date: 20100127
  Transmission Date: 20100710
  Serious: Yes (Life-Threatening)
  Sender: FDA-Public Use
  Company Number: CH-PFIZER INC-2010010629

PATIENT
  Age: 50 Year
  Sex: Female

DRUGS (8)
  1. VFEND [Suspect]
     Indication: CRYPTOSPORIDIOSIS INFECTION
     Dosage: UNK
     Route: 048
     Dates: start: 20091102, end: 20091113
  2. ZITHROMAX [Suspect]
     Indication: CRYPTOSPORIDIOSIS INFECTION
     Dosage: UNK
     Route: 048
     Dates: start: 20090701, end: 20091112
  3. SOLU-MEDROL [Suspect]
     Dosage: UNK
     Dates: start: 20091110
  4. CIPROFLOXACIN [Suspect]
     Indication: CRYPTOSPORIDIOSIS INFECTION
     Dosage: UNK
     Route: 048
     Dates: start: 20091106, end: 20091112
  5. CITALOPRAM [Suspect]
     Indication: DEPRESSION
     Dosage: UNK
     Route: 048
     Dates: start: 20090501, end: 20091112
  6. NEXIUM [Suspect]
     Dosage: UNK
     Route: 048
     Dates: end: 20091109
  7. SANDIMMUNE [Suspect]
     Dosage: UNK
     Dates: start: 20091110
  8. ZOVIRAX [Concomitant]

REACTIONS (2)
  - BRADYCARDIA [None]
  - ELECTROCARDIOGRAM QT PROLONGED [None]
